FAERS Safety Report 4521786-1 (Version None)
Quarter: 2004Q4

REPORT INFORMATION
  Report Type: 
  Country: None (occurrence: None)
  Receive Date: 20041208
  Receipt Date: 20041208
  Transmission Date: 20050328
  Serious: Yes (Disabling)
  Sender: FDA-Public Use
  Company Number: None

PATIENT
  Age: 56 Year
  Sex: Female
  Weight: 90.2658 kg

DRUGS (2)
  1. LIPITOR [Suspect]
     Indication: NEUROPATHY PERIPHERAL
     Dosage: 1 PER DAY
  2. WEAR WRIST AND ARM BRACES [Concomitant]

REACTIONS (2)
  - MUSCLE CRAMP [None]
  - NEUROPATHY PERIPHERAL [None]
